FAERS Safety Report 6945072-5 (Version None)
Quarter: 2010Q3

REPORT INFORMATION
  Report Type: 
  Country: None (occurrence: None)
  Receive Date: 20100827
  Receipt Date: 20100823
  Transmission Date: 20110219
  Serious: Yes (Death)
  Sender: FDA-Public Use
  Company Number: PHHY2010US55181

PATIENT

DRUGS (2)
  1. CLOZARIL [Suspect]
     Dosage: 100 MG, UNK
     Route: 048
     Dates: start: 19910101
  2. LITHIUM CARBONATE [Concomitant]
     Dosage: 300 MG, BID
     Route: 048

REACTIONS (1)
  - DEATH [None]
